FAERS Safety Report 20099590 (Version 1)
Quarter: 2021Q4

REPORT INFORMATION
  Report Type: Report from Study
  Country: US (occurrence: US)
  Receive Date: 20211123
  Receipt Date: 20211123
  Transmission Date: 20220303
  Serious: Yes (Other)
  Sender: FDA-Public Use
  Company Number: US-BIOVITRUM-2021US10931

PATIENT
  Sex: Male

DRUGS (7)
  1. SYNAGIS [Suspect]
     Active Substance: PALIVIZUMAB
     Indication: Antiviral prophylaxis
     Route: 030
  2. FUROSEMIDE [Concomitant]
     Active Substance: FUROSEMIDE
     Dosage: 10MG/ML BOTTLE
  3. FAMOTIDINE [Concomitant]
     Active Substance: FAMOTIDINE
     Dosage: 40MG/5ML SUSPENSION
  4. EPANED [Concomitant]
     Active Substance: ENALAPRIL MALEATE
     Dosage: 150MG/150ML SOLUTION
  5. VITAMIN D [Concomitant]
     Active Substance: VITAMIN D NOS
  6. MIRALAX [Concomitant]
     Active Substance: POLYETHYLENE GLYCOL 3350
  7. POLYETHYLENE GLYCOL 8000 [Concomitant]
     Active Substance: POLYETHYLENE GLYCOL 8000

REACTIONS (4)
  - Cardiac dysfunction [Unknown]
  - Swelling [Unknown]
  - Vomiting [Unknown]
  - Polycythaemia [Unknown]
